FAERS Safety Report 5243267-2 (Version None)
Quarter: 2007Q1

REPORT INFORMATION
  Report Type: 
  Country: None (occurrence: None)
  Receive Date: 20070215
  Receipt Date: 20070202
  Transmission Date: 20070707
  Serious: Yes (Death, Hospitalization, Other)
  Sender: FDA-Public Use
  Company Number: 06CZ000853

PATIENT
  Age: 63 Year
  Sex: Female

DRUGS (1)
  1. LITHIUM CARBONATE [Suspect]
     Indication: DRUG USE FOR UNKNOWN INDICATION

REACTIONS (12)
  - ATRIAL FIBRILLATION [None]
  - CARDIAC ARREST [None]
  - COMA [None]
  - DEHYDRATION [None]
  - DRUG TOXICITY [None]
  - HAEMODIALYSIS [None]
  - HYPERTENSION [None]
  - MYDRIASIS [None]
  - PYREXIA [None]
  - RENAL FAILURE ACUTE [None]
  - RESPIRATORY DEPRESSION [None]
  - VENTRICULAR FIBRILLATION [None]
